FAERS Safety Report 9176540 (Version 3)
Quarter: 2014Q1

REPORT INFORMATION
  Report Type: Spontaneous
  Country: FR (occurrence: FR)
  Receive Date: 20130321
  Receipt Date: 20140318
  Transmission Date: 20141002
  Serious: Yes (Life-Threatening, Hospitalization)
  Sender: FDA-Public Use
  Company Number: FR-JNJFOC-20130305727

PATIENT
  Age: 0 Year
  Sex: Male

DRUGS (1)
  1. REMICADE [Suspect]
     Indication: FOETAL EXPOSURE DURING PREGNANCY
     Route: 064

REACTIONS (6)
  - Dermo-hypodermitis [Recovered/Resolved]
  - Agranulocytosis [Recovered/Resolved]
  - Premature baby [Not Recovered/Not Resolved]
  - Pseudomonas infection [Recovering/Resolving]
  - Aplastic anaemia [Unknown]
  - Immunosuppressant drug level increased [Unknown]
